FAERS Safety Report 9064303 (Version 1)
Quarter: 2013Q1

REPORT INFORMATION
  Report Type: Report from Study
  Country: US (occurrence: US)
  Receive Date: 20130128
  Receipt Date: 20130128
  Transmission Date: 20140127
  Serious: Yes (Death, Hospitalization)
  Sender: FDA-Public Use
  Company Number: US-JNJFOC-20130110926

PATIENT
  Age: 65 Year
  Sex: Female

DRUGS (3)
  1. BENDAMUSTINE HYDROCHLORIDE [Suspect]
     Indication: PLASMA CELL MYELOMA
     Dosage: ON DAY 1 AND DAY 4
     Route: 042
     Dates: start: 20121203, end: 20121206
  2. DOXIL [Suspect]
     Indication: PLASMA CELL MYELOMA
     Dosage: DAY 4
     Route: 042
     Dates: start: 20121206, end: 20121206
  3. BORTEZOMIB [Suspect]
     Indication: PLASMA CELL MYELOMA
     Dosage: ON DAYS 1, 4 AND 8
     Route: 058
     Dates: start: 20121203, end: 20121213

REACTIONS (1)
  - Febrile neutropenia [Fatal]
